FAERS Safety Report 15249368 (Version 1)
Quarter: 2018Q3

REPORT INFORMATION
  Report Type: Spontaneous
  Country: UY (occurrence: UY)
  Receive Date: 20180807
  Receipt Date: 20180807
  Transmission Date: 20181010
  Serious: Yes (Other)
  Sender: FDA-Public Use
  Company Number: UY-ELI_LILLY_AND_COMPANY-UY201808001047

PATIENT
  Age: 66 Year
  Sex: Female

DRUGS (1)
  1. INSULIN LISPRO [Suspect]
     Active Substance: INSULIN LISPRO
     Indication: DIABETES MELLITUS
     Dosage: UNK UNK, UNKNOWN
     Route: 065

REACTIONS (6)
  - Organ failure [Unknown]
  - Gait disturbance [Unknown]
  - Blood glucose increased [Unknown]
  - Incorrect route of drug administration [Unknown]
  - Blood glucose increased [Unknown]
  - Weight decreased [Unknown]

NARRATIVE: CASE EVENT DATE: 2017
